FAERS Safety Report 23191312 (Version 1)
Quarter: 2023Q4

REPORT INFORMATION
  Report Type: Spontaneous
  Country: GB (occurrence: GB)
  Receive Date: 20231116
  Receipt Date: 20231116
  Transmission Date: 20240110
  Serious: Yes (Death, Hospitalization, Other)
  Sender: FDA-Public Use
  Company Number: GB-EXELIXIS-CABO-22057205

PATIENT
  Age: 20 Year
  Sex: Male
  Weight: 59 kg

DRUGS (9)
  1. CABOMETYX [Suspect]
     Active Substance: CABOZANTINIB S-MALATE
     Indication: Osteosarcoma metastatic
     Dosage: 60 MG, QD
     Route: 048
     Dates: start: 20221028
  2. OXYCODONE [Concomitant]
     Active Substance: OXYCODONE
     Indication: Pain
     Dosage: 80 MG
     Route: 058
     Dates: start: 20230419
  3. HALOPERIDOL [Concomitant]
     Active Substance: HALOPERIDOL
     Indication: Agitation
     Dosage: 2.5 MG, QD
     Route: 058
     Dates: start: 20230419
  4. MIDAZOLAM [Concomitant]
     Active Substance: MIDAZOLAM
     Indication: Agitation
     Dosage: 7.5 MG, QD
     Route: 058
     Dates: start: 20230419
  5. LORAZEPAM [Concomitant]
     Active Substance: LORAZEPAM
     Indication: Agitation
     Dosage: 1 MG ON
     Route: 060
     Dates: start: 20230419
  6. MORPHINE SULPHATE SOLUTION [Concomitant]
     Indication: Pain
     Dosage: 40 MG PRN
     Route: 048
     Dates: start: 20230419
  7. MIDAZOLAM [Concomitant]
     Active Substance: MIDAZOLAM
     Indication: Agitation
     Dosage: PRN PO/SC
     Dates: start: 20230419
  8. CYCLIZINE [Concomitant]
     Active Substance: CYCLIZINE
     Indication: Nausea
     Dosage: 50 MG PRN TDS PO/SC
     Dates: start: 20230419
  9. LORAZEPAM [Concomitant]
     Active Substance: LORAZEPAM
     Indication: Agitation
     Dosage: 0.5 MG PRN PO/SC
     Dates: start: 20230419

REACTIONS (11)
  - Pulmonary mass [Fatal]
  - Pyrexia [Unknown]
  - Hypoxia [Unknown]
  - Hypothyroidism [Unknown]
  - Cough [Unknown]
  - Mouth ulceration [Recovered/Resolved]
  - Palmar-plantar erythrodysaesthesia syndrome [Unknown]
  - Decreased appetite [Unknown]
  - Fatigue [Unknown]
  - Diarrhoea [Unknown]
  - Off label use [Unknown]

NARRATIVE: CASE EVENT DATE: 20221130
